FAERS Safety Report 25017625 (Version 1)
Quarter: 2025Q1

REPORT INFORMATION
  Report Type: Spontaneous
  Country: US (occurrence: None)
  Receive Date: 20250226
  Receipt Date: 20250226
  Transmission Date: 20250409
  Serious: Yes (Other)
  Sender: FDA-CTU
  Company Number: None

PATIENT

DRUGS (1)
  1. BIVIGAM [Suspect]
     Active Substance: HUMAN IMMUNOGLOBULIN G
     Indication: Chronic inflammatory demyelinating polyradiculoneuropathy
     Dosage: OTHER STRENGTH : 10/100 MG/ML;?FREQUENCY : MONTHLY;?
     Route: 042
     Dates: start: 20250224, end: 20250224

REACTIONS (2)
  - Eye swelling [None]
  - Lip swelling [None]

NARRATIVE: CASE EVENT DATE: 20250224
